FAERS Safety Report 4804359-2 (Version None)
Quarter: 2005Q4

REPORT INFORMATION
  Report Type: 
  Country: None (occurrence: None)
  Receive Date: 20051020
  Receipt Date: 20051014
  Transmission Date: 20060501
  Serious: Yes (Hospitalization)
  Sender: FDA-Public Use
  Company Number: AU-BRISTOL-MYERS SQUIBB COMPANY-13144415

PATIENT
  Age: 72 Year
  Sex: Female

DRUGS (5)
  1. CETUXIMAB [Suspect]
     Indication: COLORECTAL CANCER METASTATIC
     Dosage: INITIAL TX DATE: 23-SEP-05.  DOSE DELAYED/OMITTED.
     Route: 042
     Dates: start: 20051007, end: 20051007
  2. IRINOTECAN HCL [Suspect]
     Indication: COLORECTAL CANCER METASTATIC
     Dosage: DOSE DELAYED/OMITTED.
     Route: 042
     Dates: start: 20050923, end: 20050923
  3. METFORMIN HCL [Concomitant]
     Dates: start: 20010101
  4. CIPROFLOXACIN [Concomitant]
     Dates: start: 20051009, end: 20051013
  5. NITROFURANTOIN [Concomitant]
     Dates: start: 20051002, end: 20051013

REACTIONS (4)
  - BLOOD CREATININE INCREASED [None]
  - MALAISE [None]
  - RENAL FAILURE [None]
  - VOMITING [None]
